FAERS Safety Report 8738419 (Version 2)
Quarter: 2013Q4

REPORT INFORMATION
  Report Type: Spontaneous
  Country: US (occurrence: US)
  Receive Date: 20120823
  Receipt Date: 20131031
  Transmission Date: 20140711
  Serious: Yes (Hospitalization)
  Sender: FDA-Public Use
  Company Number: US-009507513-1208USA006411

PATIENT
  Sex: Female

DRUGS (3)
  1. PEPCID [Suspect]
     Indication: GASTRIC DISORDER
     Dosage: 30 MG, PRN
     Route: 048
     Dates: start: 2011
  2. PEPCID [Suspect]
     Indication: ABDOMINAL PAIN UPPER
     Dosage: 30 MG, PRN
     Route: 048
     Dates: start: 2011, end: 2012
  3. NIFEDIPINE [Suspect]
     Indication: HYPERTENSION
     Dosage: UNK, PRN
     Route: 048
     Dates: end: 2011

REACTIONS (1)
  - Myocardial infarction [Unknown]
